FAERS Safety Report 6697795-3 (Version None)
Quarter: 2010Q2

REPORT INFORMATION
  Report Type: 
  Country: None (occurrence: None)
  Receive Date: 20100423
  Receipt Date: 20100412
  Transmission Date: 20101027
  Serious: Yes (Hospitalization)
  Sender: FDA-Public Use
  Company Number: CV20100182

PATIENT
  Age: 38 Year
  Sex: Female

DRUGS (1)
  1. SODIUM CHLORIDE [Suspect]
     Indication: LAPAROSCOPIC SURGERY

REACTIONS (4)
  - HEART RATE INCREASED [None]
  - MUSCULOSKELETAL PAIN [None]
  - PLEURAL EFFUSION [None]
  - RESPIRATORY RATE INCREASED [None]
